FAERS Safety Report 10247330 (Version 1)
Quarter: 2014Q2

REPORT INFORMATION
  Report Type: Spontaneous
  Country: IR (occurrence: IR)
  Receive Date: 20140619
  Receipt Date: 20140619
  Transmission Date: 20141212
  Serious: Yes (Other)
  Sender: FDA-Public Use
  Company Number: IR-ROXANE LABORATORIES, INC.-2014-RO-00940RO

PATIENT
  Age: 44 Year
  Sex: Male

DRUGS (3)
  1. CLARITHROMYCIN [Suspect]
     Indication: PEPTIC ULCER HELICOBACTER
     Dosage: 500 MG
     Route: 065
  2. AMOXICILLIN [Suspect]
     Indication: PEPTIC ULCER HELICOBACTER
     Dosage: 2000 MG
     Route: 065
  3. PANTOPRAZOLE [Suspect]
     Indication: PEPTIC ULCER HELICOBACTER
     Dosage: 20 MG
     Route: 065

REACTIONS (1)
  - Hypomania [Unknown]
